FAERS Safety Report 11198458 (Version 1)
Quarter: 2015Q2

REPORT INFORMATION
  Report Type: Spontaneous
  Country: US (occurrence: None)
  Receive Date: 20150616
  Receipt Date: 20150616
  Transmission Date: 20150821
  Serious: Yes (Other)
  Sender: FDA-Public Use
  Company Number: DEP_03014_2015

PATIENT
  Age: 71 Year
  Sex: Female

DRUGS (11)
  1. FLEXERIL [Concomitant]
     Active Substance: CYCLOBENZAPRINE HYDROCHLORIDE
  2. OXYCONTIN [Concomitant]
     Active Substance: OXYCODONE HYDROCHLORIDE
  3. PERCOCET [Concomitant]
     Active Substance: ACETAMINOPHEN\OXYCODONE HYDROCHLORIDE
  4. SIMVASTATIN. [Concomitant]
     Active Substance: SIMVASTATIN
  5. ZOCOR [Concomitant]
     Active Substance: SIMVASTATIN
  6. GABAPENTIN. [Concomitant]
     Active Substance: GABAPENTIN
  7. KEFLEX [Concomitant]
     Active Substance: CEPHALEXIN
  8. ZIPSOR [Suspect]
     Active Substance: DICLOFENAC POTASSIUM
     Indication: ARTHRALGIA
     Dosage: DF
     Dates: start: 2005, end: 201503
  9. DICLOFENAC POTASSIUM. [Suspect]
     Active Substance: DICLOFENAC POTASSIUM
     Indication: PRODUCT USED FOR UNKNOWN INDICATION
     Dosage: DF
     Dates: end: 2015
  10. COZAAR [Concomitant]
     Active Substance: LOSARTAN POTASSIUM
  11. HYDROCHLOROTHIAZIDE. [Concomitant]
     Active Substance: HYDROCHLOROTHIAZIDE

REACTIONS (2)
  - Chronic kidney disease [None]
  - Interstitial granulomatous dermatitis [None]

NARRATIVE: CASE EVENT DATE: 201501
